FAERS Safety Report 19173437 (Version 2)
Quarter: 2022Q1

REPORT INFORMATION
  Report Type: Spontaneous
  Country: FR (occurrence: FR)
  Receive Date: 20210423
  Receipt Date: 20220304
  Transmission Date: 20220423
  Serious: Yes (Hospitalization)
  Sender: FDA-Public Use
  Company Number: None

PATIENT
  Age: 36 Year
  Sex: Male

DRUGS (4)
  1. ACETAMINOPHEN [Suspect]
     Active Substance: ACETAMINOPHEN
     Indication: Pain
     Dosage: UNK (ONGOING)
     Route: 065
     Dates: start: 20180910, end: 20181123
  2. PIPERACILLIN SODIUM [Suspect]
     Active Substance: PIPERACILLIN SODIUM
     Indication: Osteitis
     Dosage: 16 G, QD
     Route: 042
     Dates: start: 20180914, end: 20181115
  3. ESCARGOT [Suspect]
     Active Substance: ESCARGOT
     Indication: Cough
     Dosage: UNK
     Route: 048
     Dates: start: 20181023, end: 20181027
  4. TAZOBACTAM [Suspect]
     Active Substance: TAZOBACTAM
     Indication: Osteitis
     Dosage: 16 G,QD
     Route: 042
     Dates: start: 20180914, end: 20181115

REACTIONS (1)
  - Drug reaction with eosinophilia and systemic symptoms [Recovering/Resolving]

NARRATIVE: CASE EVENT DATE: 20181114
